FAERS Safety Report 9535356 (Version 7)
Quarter: 2014Q2

REPORT INFORMATION
  Report Type: Spontaneous
  Country: US (occurrence: US)
  Receive Date: 20130918
  Receipt Date: 20140610
  Transmission Date: 20141212
  Serious: Yes (Hospitalization, Other)
  Sender: FDA-Public Use
  Company Number: US-009507513-1309USA005420

PATIENT
  Sex: Female
  Weight: 55.78 kg

DRUGS (5)
  1. FOSAMAX [Suspect]
     Indication: OSTEOPOROSIS
     Dosage: 10 MG, UNK
     Route: 048
     Dates: start: 19960228
  2. FOSAMAX [Suspect]
     Dosage: 70 MG, UNK
     Route: 048
     Dates: end: 20080308
  3. FOSAMAX [Suspect]
     Dosage: UNK
     Route: 048
     Dates: end: 2010
  4. ALENDRONATE SODIUM [Suspect]
     Indication: OSTEOPOROSIS
     Dosage: 70 MG, UNK
     Route: 048
     Dates: start: 20080305, end: 20110428
  5. FOSAMAX PLUS D [Suspect]
     Indication: OSTEOPOROSIS
     Dosage: UNK, QW
     Route: 048
     Dates: start: 20060703, end: 2011

REACTIONS (71)
  - Periprosthetic fracture [Unknown]
  - Open reduction of fracture [Unknown]
  - Hip arthroplasty [Unknown]
  - Spinal compression fracture [Unknown]
  - Vertebroplasty [Unknown]
  - Spinal compression fracture [Unknown]
  - Hip arthroplasty [Unknown]
  - Hypertension [Unknown]
  - Transient ischaemic attack [Unknown]
  - Cerebrovascular disorder [Unknown]
  - Deafness bilateral [Unknown]
  - Carotid bruit [Unknown]
  - Blood thyroid stimulating hormone increased [Unknown]
  - Antidiuretic hormone abnormality [Unknown]
  - Hypokalaemia [Unknown]
  - Hyponatraemia [Unknown]
  - Hypertension [Unknown]
  - Hypotension [Unknown]
  - Lacunar infarction [Unknown]
  - Tinnitus [Not Recovered/Not Resolved]
  - Decreased vibratory sense [Unknown]
  - Sensory disturbance [Unknown]
  - White matter lesion [Unknown]
  - Areflexia [Unknown]
  - Asthenia [Unknown]
  - Back pain [Not Recovered/Not Resolved]
  - Nausea [Unknown]
  - Low turnover osteopathy [Unknown]
  - Radius fracture [Unknown]
  - Impaired healing [Unknown]
  - Spinal fracture [Unknown]
  - Back crushing [Unknown]
  - Arthritis [Unknown]
  - Actinic keratosis [Unknown]
  - Panic disorder [Unknown]
  - Fluid retention [Unknown]
  - Bacterial infection [Unknown]
  - Herpes virus infection [Unknown]
  - Fall [Unknown]
  - Cough [Unknown]
  - Anaemia [Unknown]
  - Osteoarthritis [Unknown]
  - Osteoarthritis [Unknown]
  - Cataract operation [Unknown]
  - Sinus arrhythmia [Unknown]
  - Atrioventricular block first degree [Unknown]
  - Myositis [Unknown]
  - Osteoarthritis [Unknown]
  - Spinal compression fracture [Unknown]
  - Anxiety [Unknown]
  - Dry mouth [Unknown]
  - Lip pain [Unknown]
  - Diplopia [Unknown]
  - Memory impairment [Unknown]
  - Paraesthesia [Unknown]
  - Arthritis [Unknown]
  - Cerumen impaction [Unknown]
  - Pain in extremity [Recovered/Resolved]
  - Gastric ulcer [Unknown]
  - Drug hypersensitivity [Unknown]
  - Dizziness [Unknown]
  - Muscle spasms [Unknown]
  - Constipation [Recovering/Resolving]
  - Dyspepsia [Unknown]
  - Pain in extremity [Unknown]
  - Arthralgia [Unknown]
  - Gastrooesophageal reflux disease [Unknown]
  - Nausea [Unknown]
  - Arthralgia [Not Recovered/Not Resolved]
  - Diarrhoea [Unknown]
  - Neck pain [Not Recovered/Not Resolved]
